FAERS Safety Report 17648472 (Version 1)
Quarter: 2020Q2

REPORT INFORMATION
  Report Type: Spontaneous
  Country: IT (occurrence: IT)
  Receive Date: 20200408
  Receipt Date: 20200408
  Transmission Date: 20200713
  Serious: Yes (Hospitalization)
  Sender: FDA-Public Use
  Company Number: IT-JNJFOC-20200345834

PATIENT
  Age: 87 Year
  Sex: Male

DRUGS (4)
  1. RIVAROXABAN [Suspect]
     Active Substance: RIVAROXABAN
     Indication: PROPHYLAXIS
     Dosage: 15 MG/H, QD
     Route: 048
     Dates: start: 20170101, end: 20200216
  2. DUOPLAVIN [Suspect]
     Active Substance: ASPIRIN\CLOPIDOGREL
     Indication: PROPHYLAXIS
     Dosage: 175 MG, QD
     Route: 048
     Dates: start: 20150101, end: 20200216
  3. TORVAST [Concomitant]
     Active Substance: ATORVASTATIN
     Dosage: 40 MG
  4. LANOXIN [Concomitant]
     Active Substance: DIGOXIN
     Dosage: 0.25 MG

REACTIONS (4)
  - Melaena [Recovering/Resolving]
  - Anaemia [Recovering/Resolving]
  - Gastrointestinal angiodysplasia [Recovering/Resolving]
  - Gastritis erosive [Recovering/Resolving]

NARRATIVE: CASE EVENT DATE: 20200216
